FAERS Safety Report 21129533 (Version 1)
Quarter: 2022Q3

REPORT INFORMATION
  Report Type: Spontaneous
  Country: AU (occurrence: AU)
  Receive Date: 20220726
  Receipt Date: 20220726
  Transmission Date: 20221027
  Serious: Yes (Hospitalization, Other)
  Sender: FDA-Public Use
  Company Number: AU-MACLEODS PHARMACEUTICALS US LTD-MAC2022036521

PATIENT

DRUGS (1)
  1. LIDOCAINE [Suspect]
     Active Substance: LIDOCAINE
     Indication: Analgesic therapy
     Dosage: UNK, LESS THAN 300 G
     Route: 061

REACTIONS (14)
  - Aphasia [Recovering/Resolving]
  - Drug level increased [Recovering/Resolving]
  - Hypertonia [Recovering/Resolving]
  - Electrocardiogram QRS complex prolonged [Recovered/Resolved]
  - Hyperreflexia [Recovering/Resolving]
  - Neurotoxicity [Recovering/Resolving]
  - Muscle twitching [Recovering/Resolving]
  - Disorientation [Recovering/Resolving]
  - Ataxia [Recovering/Resolving]
  - Dysarthria [Recovering/Resolving]
  - Cardiotoxicity [Recovered/Resolved]
  - Agitation [Recovering/Resolving]
  - Prescription drug used without a prescription [Unknown]
  - Overdose [Recovering/Resolving]
